FAERS Safety Report 6437220-0 (Version None)
Quarter: 2009Q4

REPORT INFORMATION
  Report Type: 
  Country: None (occurrence: None)
  Receive Date: 20091112
  Receipt Date: 20091006
  Transmission Date: 20100525
  Serious: No
  Sender: FDA-Public Use
  Company Number: A0810583A

PATIENT
  Age: 57 Year
  Sex: Female

DRUGS (15)
  1. TREXIMET [Suspect]
     Indication: MIGRAINE
     Dosage: 1TAB AS REQUIRED
     Route: 048
     Dates: start: 20090601, end: 20090601
  2. SYNTHROID [Concomitant]
  3. WELLBUTRIN [Concomitant]
  4. DIAMOX SRC [Concomitant]
  5. DALMANE [Concomitant]
  6. PROPRANOLOL [Concomitant]
  7. MECLIZINE [Concomitant]
  8. AMITIZA [Concomitant]
  9. MOBIC [Concomitant]
  10. SUCRALFATE [Concomitant]
  11. FOCALIN [Concomitant]
  12. XANAX [Concomitant]
  13. ZEGERID [Concomitant]
  14. LEXAPRO [Concomitant]
  15. PEPCID [Concomitant]

REACTIONS (1)
  - GASTRIC DISORDER [None]
